FAERS Safety Report 9159527 (Version 2)
Quarter: 2013Q2

REPORT INFORMATION
  Report Type: Spontaneous
  Country: GB (occurrence: GB)
  Receive Date: 20130313
  Receipt Date: 20130507
  Transmission Date: 20140414
  Serious: No
  Sender: FDA-Public Use
  Company Number: PHFR2013GB001635

PATIENT
  Age: 32 Year
  Sex: Female

DRUGS (1)
  1. CLOZARIL [Suspect]
     Dosage: 325 MG, (100 MG AM, 100 MG PM, 125 MG NOCTE)
     Route: 048
     Dates: start: 20110214

REACTIONS (2)
  - Incorrect dose administered [Unknown]
  - Platelet count increased [Recovered/Resolved]
